FAERS Safety Report 20590484 (Version 1)
Quarter: 2022Q1

REPORT INFORMATION
  Report Type: Spontaneous
  Country: None (occurrence: FR)
  Receive Date: 20220314
  Receipt Date: 20220314
  Transmission Date: 20220423
  Serious: Yes (Other)
  Sender: FDA-Public Use
  Company Number: FR-B.Braun Medical Inc.-2126752

PATIENT
  Age: 63 Year
  Sex: Female
  Weight: 129 kg

DRUGS (9)
  1. CEFTRIAXONE SODIUM [Suspect]
     Active Substance: CEFTRIAXONE SODIUM
  2. SUFENTANIL [Suspect]
     Active Substance: SUFENTANIL
  3. EPHEDRINE [Suspect]
     Active Substance: EPHEDRINE
  4. METRONIDAZOLE [Suspect]
     Active Substance: METRONIDAZOLE
  5. PROPOFOL LIPURO [Suspect]
     Active Substance: PROPOFOL
  6. SUCCINYLCHOLINE [Suspect]
     Active Substance: SUCCINYLCHOLINE
  7. PREGABALIN [Suspect]
     Active Substance: PREGABALIN
  8. IOMERON [Suspect]
     Active Substance: IOMEPROL
  9. IOBITRIDOL [Suspect]
     Active Substance: IOBITRIDOL

REACTIONS (3)
  - Neutrophilia [Recovering/Resolving]
  - Eosinophilia [Recovering/Resolving]
  - Rash maculo-papular [Recovering/Resolving]
